FAERS Safety Report 6943643-3 (Version None)
Quarter: 2010Q3

REPORT INFORMATION
  Report Type: 
  Country: None (occurrence: None)
  Receive Date: 20100826
  Receipt Date: 20100819
  Transmission Date: 20110219
  Serious: Yes (Death, Hospitalization)
  Sender: FDA-Public Use
  Company Number: PHHY2010MX23959

PATIENT
  Sex: Female

DRUGS (1)
  1. ZOMETA [Suspect]
     Indication: HAEMATOPOIETIC NEOPLASM
     Dosage: 4 MG, QMO
     Route: 042
     Dates: start: 20100409

REACTIONS (9)
  - BONE EROSION [None]
  - BONE NEOPLASM MALIGNANT [None]
  - MALIGNANT NEOPLASM PROGRESSION [None]
  - METASTASES TO KIDNEY [None]
  - METASTASES TO LUNG [None]
  - MULTIPLE FRACTURES [None]
  - PLEURAL EFFUSION [None]
  - PULMONARY OEDEMA [None]
  - RESPIRATORY ARREST [None]
